FAERS Safety Report 14211071 (Version 2)
Quarter: 2018Q1

REPORT INFORMATION
  Report Type: Spontaneous
  Country: US (occurrence: US)
  Receive Date: 20171121
  Receipt Date: 20180214
  Transmission Date: 20180508
  Serious: Yes (Hospitalization)
  Sender: FDA-Public Use
  Company Number: US-OTSUKA-2017_025128

PATIENT
  Sex: Female

DRUGS (2)
  1. SAMSCA [Suspect]
     Active Substance: TOLVAPTAN
     Indication: BLOOD OSMOLARITY DECREASED
     Dosage: 1 DF, QD
     Route: 048
     Dates: start: 201604
  2. SAMSCA [Suspect]
     Active Substance: TOLVAPTAN
     Indication: HYPONATRAEMIA

REACTIONS (3)
  - Depressed mood [Unknown]
  - Hospitalisation [Unknown]
  - Fall [Unknown]

NARRATIVE: CASE EVENT DATE: 2017
